FAERS Safety Report 9871563 (Version 2)
Quarter: 2014Q3

REPORT INFORMATION
  Report Type: Spontaneous
  Country: US (occurrence: US)
  Receive Date: 20140205
  Receipt Date: 20140717
  Transmission Date: 20150326
  Serious: Yes (Hospitalization, Other)
  Sender: FDA-Public Use
  Company Number: US-009507513-1402USA002140

PATIENT
  Sex: Female

DRUGS (1)
  1. NUVARING [Suspect]
     Active Substance: ETHINYL ESTRADIOL\ETONOGESTREL
     Indication: CONTRACEPTION
     Dosage: INSERT 1 RING VAGINALLY FOR 21 DAYS THEN REMOVE FOR 7 DAYS AND REPEAT
     Route: 067
     Dates: start: 20101005

REACTIONS (7)
  - Deep vein thrombosis [Unknown]
  - Keratomileusis [Unknown]
  - Biopsy liver [Unknown]
  - Phlebitis superficial [Unknown]
  - Pulmonary embolism [Unknown]
  - Depression [Unknown]
  - Chronic hepatitis B [Unknown]

NARRATIVE: CASE EVENT DATE: 201010
